FAERS Safety Report 9218914 (Version 1)
Quarter: 2013Q2

REPORT INFORMATION
  Report Type: Spontaneous
  Country: US (occurrence: None)
  Receive Date: 20130405
  Receipt Date: 20130405
  Transmission Date: 20140414
  Serious: Yes (Other)
  Sender: FDA-Public Use
  Company Number: None

PATIENT
  Sex: Male

DRUGS (1)
  1. SINGULAIR [Suspect]

REACTIONS (2)
  - Therapeutic response unexpected with drug substitution [None]
  - Drug ineffective [None]
